FAERS Safety Report 8553060-0 (Version None)
Quarter: 2012Q3

REPORT INFORMATION
  Report Type: 
  Country: None (occurrence: None)
  Receive Date: 20120731
  Receipt Date: 20120726
  Transmission Date: 20120928
  Serious: Yes (Hospitalization)
  Sender: FDA-Public Use
  Company Number: DE-SANOFI-AVENTIS-2011SA027596

PATIENT
  Age: 71 Year
  Sex: Female
  Weight: 74 kg

DRUGS (11)
  1. DOCETAXEL [Suspect]
     Indication: BREAST CANCER
     Route: 041
     Dates: start: 20110203, end: 20110203
  2. CYCLOPHOSPHAMIDE [Suspect]
     Indication: BREAST CANCER
     Route: 041
     Dates: start: 20110428, end: 20110428
  3. TIOTROPIUM BROMIDE [Concomitant]
     Route: 055
     Dates: start: 20110514
  4. TIMOLOL MALEATE [Concomitant]
     Indication: GLAUCOMA
     Route: 065
  5. DEXAMETHASONE [Concomitant]
     Route: 042
     Dates: start: 20110428, end: 20110428
  6. RAMIPRIL [Concomitant]
     Indication: HYPERTENSION
     Route: 048
     Dates: end: 20110509
  7. DOCETAXEL [Suspect]
     Route: 041
     Dates: start: 20110428, end: 20110428
  8. GRANISETRON HYDROCHLORIDE [Concomitant]
     Indication: PROPHYLAXIS
     Route: 042
     Dates: start: 20110428, end: 20110428
  9. SALMETEROL XINAFOATE [Concomitant]
     Route: 055
     Dates: start: 20110513, end: 20110601
  10. CYCLOPHOSPHAMIDE [Suspect]
     Route: 041
     Dates: start: 20110203, end: 20110203
  11. DEXAMETHASONE [Concomitant]
     Indication: PROPHYLAXIS
     Dosage: IV/PO
     Route: 048
     Dates: start: 20110427, end: 20110430

REACTIONS (4)
  - OEDEMA [None]
  - CHRONIC OBSTRUCTIVE PULMONARY DISEASE [None]
  - DYSPNOEA [None]
  - POLYNEUROPATHY [None]
